APPROVED DRUG PRODUCT: ANCOBON
Active Ingredient: FLUCYTOSINE
Strength: 250MG
Dosage Form/Route: CAPSULE;ORAL
Application: N017001 | Product #001 | TE Code: AB
Applicant: BAUSCH HEALTH US LLC
Approved: Approved Prior to Jan 1, 1982 | RLD: Yes | RS: No | Type: RX